FAERS Safety Report 5965747-4 (Version None)
Quarter: 2008Q4

REPORT INFORMATION
  Report Type: 
  Country: None (occurrence: None)
  Receive Date: 20081125
  Receipt Date: 20081120
  Transmission Date: 20090506
  Serious: Yes (Hospitalization, Other)
  Sender: FDA-Public Use
  Company Number: B0546725A

PATIENT
  Age: 6 Year
  Sex: Female
  Weight: 35 kg

DRUGS (2)
  1. RYTMONORM [Suspect]
     Dosage: 120MG THREE TIMES PER DAY
     Route: 048
     Dates: start: 20080301
  2. AZITHROMYCIN [Concomitant]
     Indication: SINOBRONCHITIS
     Route: 048

REACTIONS (4)
  - IDIOPATHIC THROMBOCYTOPENIC PURPURA [None]
  - PETECHIAE [None]
  - PURPURA [None]
  - SINOBRONCHITIS [None]
